FAERS Safety Report 10100040 (Version 1)
Quarter: 2014Q2

REPORT INFORMATION
  Report Type: Spontaneous
  Country: US (occurrence: US)
  Receive Date: 20140423
  Receipt Date: 20140423
  Transmission Date: 20141212
  Serious: No
  Sender: FDA-Public Use
  Company Number: US-JNJFOC-20140317171

PATIENT
  Age: 27 Year
  Sex: Male

DRUGS (3)
  1. INVEGA SUSTENNA [Suspect]
     Indication: SCHIZOPHRENIA
     Dosage: SECOND INITIATION DOSE
     Route: 030
     Dates: start: 20140107
  2. INVEGA SUSTENNA [Suspect]
     Indication: SCHIZOPHRENIA
     Dosage: FIRST MAINTENANCE DOSE
     Route: 030
     Dates: start: 20140206
  3. INVEGA SUSTENNA [Suspect]
     Indication: SCHIZOPHRENIA
     Dosage: FIRST INITIATION DOSE
     Route: 030
     Dates: start: 20131231

REACTIONS (1)
  - Drug dose omission [Unknown]
